FAERS Safety Report 4726920-6 (Version None)
Quarter: 2005Q3

REPORT INFORMATION
  Report Type: 
  Country: None (occurrence: None)
  Receive Date: 20050725
  Receipt Date: 20050725
  Transmission Date: 20060218
  Serious: Yes (Hospitalization)
  Sender: FDA-Public Use
  Company Number: None

PATIENT
  Age: 42 Year
  Sex: Male
  Weight: 82.7815 kg

DRUGS (4)
  1. OXALIPLATIN 130 MG/M2 DAY 1 [Suspect]
     Indication: BILE DUCT CANCER
     Dosage: 262.6 MG DAY 1 Q 21 DAY INTRAVENOUS
     Route: 042
     Dates: start: 20050411, end: 20050502
  2. OXALIPLATIN 130 MG/M2 DAY 1 [Suspect]
     Indication: CHEMOTHERAPY
     Dosage: 262.6 MG DAY 1 Q 21 DAY INTRAVENOUS
     Route: 042
     Dates: start: 20050411, end: 20050502
  3. VELCADE [Suspect]
     Dosage: 3.23 MG DAYS 1 AND 8 Q INTRAVENOUS
     Route: 042
     Dates: start: 20050411, end: 20050509
  4. CAPECITABINE [Concomitant]

REACTIONS (9)
  - ABDOMINAL PAIN UPPER [None]
  - BILE DUCT STENOSIS [None]
  - BILIARY DRAINAGE [None]
  - CANDIDIASIS [None]
  - CHOLANGIOGRAM ABNORMAL [None]
  - CHOLESTASIS [None]
  - CONSTIPATION [None]
  - DISEASE PROGRESSION [None]
  - PYREXIA [None]
